FAERS Safety Report 4823871-3 (Version None)
Quarter: 2005Q4

REPORT INFORMATION
  Report Type: 
  Country: None (occurrence: None)
  Receive Date: 20051107
  Receipt Date: 20051025
  Transmission Date: 20060501
  Serious: Yes (Hospitalization, Other)
  Sender: FDA-Public Use
  Company Number: 2005076171

PATIENT
  Age: 41 Year
  Sex: Female
  Weight: 167.3773 kg

DRUGS (7)
  1. ZOLOFT [Suspect]
     Indication: OBSESSIVE-COMPULSIVE DISORDER
  2. THIOTHIXENE [Suspect]
     Indication: SCHIZOPHRENIA
  3. LEVOTHYROXINE SODIUM [Suspect]
     Indication: HYPOTHYROIDISM
     Dosage: 200 MCG (200 MCG, 1 IN 1 D), ORAL
     Route: 048
     Dates: start: 20050101
  4. NEXIUM [Suspect]
     Indication: ILL-DEFINED DISORDER
     Dates: start: 20041201
  5. DIURETICS (DIURETICS) [Suspect]
     Indication: HYPERTENSION
     Dates: start: 20050620
  6. METOPROLOL TARTRATE [Concomitant]
  7. DIAZEPAM [Concomitant]

REACTIONS (9)
  - ATRIAL FIBRILLATION [None]
  - BLOOD POTASSIUM DECREASED [None]
  - CONDITION AGGRAVATED [None]
  - DRUG EFFECT DECREASED [None]
  - DRUG LEVEL INCREASED [None]
  - HYPERTHYROIDISM [None]
  - HYPONATRAEMIA [None]
  - INSOMNIA [None]
  - MENTAL DISORDER [None]
